FAERS Safety Report 9626514 (Version 1)
Quarter: 2013Q4

REPORT INFORMATION
  Report Type: Spontaneous
  Country: US (occurrence: None)
  Receive Date: 20131015
  Receipt Date: 20131015
  Transmission Date: 20140711
  Serious: Yes (Hospitalization)
  Sender: FDA-Public Use
  Company Number: None

PATIENT
  Age: 29 Year
  Sex: Male
  Weight: 77.11 kg

DRUGS (1)
  1. CLINDAMYCIN HCL [Suspect]
     Dosage: YES, TWICE DAILY, TAKEN BY MOUTH
     Route: 048

REACTIONS (7)
  - Diarrhoea [None]
  - Joint swelling [None]
  - Joint swelling [None]
  - Local swelling [None]
  - Joint swelling [None]
  - Pyrexia [None]
  - Joint effusion [None]
